FAERS Safety Report 6010326-6 (Version None)
Quarter: 2008Q4

REPORT INFORMATION
  Report Type: 
  Country: None (occurrence: None)
  Receive Date: 20081218
  Receipt Date: 20080723
  Transmission Date: 20090506
  Serious: No
  Sender: FDA-Public Use
  Company Number: A0739104A

PATIENT
  Age: 74 Year
  Sex: Female

DRUGS (8)
  1. FLONASE [Suspect]
     Indication: PAIN
     Dosage: 2SPR PER DAY
     Route: 045
     Dates: start: 20080615
  2. GLUCOPHAGE [Concomitant]
  3. AVAPRO [Concomitant]
  4. M.V.I. [Concomitant]
  5. CALCIUM [Concomitant]
  6. CRANBERRY [Concomitant]
  7. LOVAZA [Concomitant]
  8. OXYBUTYN [Concomitant]

REACTIONS (1)
  - BLOOD GLUCOSE INCREASED [None]
